FAERS Safety Report 8837708 (Version 1)
Quarter: 2012Q4

REPORT INFORMATION
  Report Type: Report from Study
  Country: DE (occurrence: DE)
  Receive Date: 20121012
  Receipt Date: 20121012
  Transmission Date: 20130627
  Serious: Yes (Hospitalization)
  Sender: FDA-Public Use
  Company Number: DE-ROCHE-1144560

PATIENT
  Age: 50 Year
  Sex: Male
  Weight: 65 kg

DRUGS (3)
  1. MABTHERA [Suspect]
     Indication: RHEUMATOID ARTHRITIS
     Dosage: On 21/Feb/2012, last dose prior to SAE.
     Route: 042
     Dates: start: 20120207
  2. MTX [Concomitant]
     Indication: RHEUMATOID ARTHRITIS
     Route: 058
  3. PREDNISOLON [Concomitant]
     Indication: RHEUMATOID ARTHRITIS
     Route: 048
     Dates: end: 20120611

REACTIONS (3)
  - Pain in extremity [Recovered/Resolved]
  - Synovitis [Recovered/Resolved]
  - Muscle rupture [Recovered/Resolved]
